FAERS Safety Report 5656133-5 (Version None)
Quarter: 2008Q1

REPORT INFORMATION
  Report Type: 
  Country: None (occurrence: None)
  Receive Date: 20080305
  Receipt Date: 20080221
  Transmission Date: 20080703
  Serious: Yes (Hospitalization, Other)
  Sender: FDA-Public Use
  Company Number: 2008VX000420

PATIENT
  Sex: Male
  Weight: 3.656 kg

DRUGS (1)
  1. MESTINON [Suspect]
     Indication: MYASTHENIA GRAVIS
     Dosage: 60 MG;TID

REACTIONS (1)
  - DRUG EXPOSURE DURING PREGNANCY [None]
